FAERS Safety Report 11790459 (Version 2)
Quarter: 2015Q4

REPORT INFORMATION
  Report Type: Spontaneous
  Country: JP (occurrence: JP)
  Receive Date: 20151201
  Receipt Date: 20151201
  Transmission Date: 20160305
  Serious: Yes (Hospitalization, Other)
  Sender: FDA-Public Use
  Company Number: JP-BAYER-2015-471729

PATIENT
  Age: 70 Year
  Sex: Male

DRUGS (1)
  1. GADOVIST [Suspect]
     Active Substance: GADOBUTROL
     Dosage: 7.5 ML, ONCE
     Route: 042
     Dates: start: 20151109, end: 20151109

REACTIONS (5)
  - Lower limb fracture [None]
  - Musculoskeletal stiffness [None]
  - Loss of consciousness [Recovered/Resolved]
  - Dizziness [None]
  - Aspiration [None]

NARRATIVE: CASE EVENT DATE: 20151109
